FAERS Safety Report 22612365 (Version 3)
Quarter: 2024Q1

REPORT INFORMATION
  Report Type: Spontaneous
  Country: US (occurrence: US)
  Receive Date: 20230617
  Receipt Date: 20240111
  Transmission Date: 20240410
  Serious: No
  Sender: FDA-Public Use
  Company Number: US-ABBVIE-5294199

PATIENT
  Sex: Female

DRUGS (2)
  1. LATISSE [Suspect]
     Active Substance: BIMATOPROST
     Indication: Growth of eyelashes
     Route: 050
     Dates: start: 202211
  2. ESCITALOPRAM OXALATE [Suspect]
     Active Substance: ESCITALOPRAM OXALATE
     Indication: Neuralgia
     Route: 065

REACTIONS (4)
  - Neuropathy peripheral [Unknown]
  - Eyelash changes [Unknown]
  - Therapeutic product effect incomplete [Unknown]
  - Pain [Unknown]
